FAERS Safety Report 7197018-5 (Version None)
Quarter: 2010Q4

REPORT INFORMATION
  Report Type: 
  Country: None (occurrence: None)
  Receive Date: 20101224
  Receipt Date: 20101213
  Transmission Date: 20110411
  Serious: Yes (Other)
  Sender: FDA-Public Use
  Company Number: PHHY2010MX85299

PATIENT
  Age: 55 Year
  Sex: Female

DRUGS (2)
  1. ACLASTA [Suspect]
     Indication: OSTEOPOROSIS
     Dosage: 5 MG/100 ML/ YEAR
     Dates: start: 20061101
  2. ACLASTA [Suspect]
     Dosage: 5 MG/100 ML/ YEAR
     Dates: start: 20101015

REACTIONS (2)
  - ANKLE FRACTURE [None]
  - FALL [None]
